FAERS Safety Report 5677673-9 (Version None)
Quarter: 2008Q1

REPORT INFORMATION
  Report Type: 
  Country: None (occurrence: None)
  Receive Date: 20080324
  Receipt Date: 20080229
  Transmission Date: 20080703
  Serious: No
  Sender: FDA-Public Use
  Company Number: US-BOEHRINGER INGELHEIM GMBH, GERMANY-2008-BP-03086BP

PATIENT
  Sex: Female

DRUGS (4)
  1. FLOMAX [Suspect]
     Indication: BENIGN PROSTATIC HYPERPLASIA
     Route: 048
     Dates: start: 20080101
  2. LISINOPRIL [Concomitant]
     Indication: HYPERTENSION
  3. TENORMIN [Concomitant]
     Indication: HYPERTENSION
  4. COSOPT [Concomitant]
     Indication: INTRAOCULAR PRESSURE INCREASED

REACTIONS (1)
  - SOMNOLENCE [None]
